FAERS Safety Report 6327247-1 (Version None)
Quarter: 2009Q3

REPORT INFORMATION
  Report Type: 
  Country: None (occurrence: None)
  Receive Date: 20090825
  Receipt Date: 20090817
  Transmission Date: 20100115
  Serious: Yes (Other)
  Sender: FDA-Public Use
  Company Number: GB-TEVA-206266ISR

PATIENT
  Sex: Male

DRUGS (2)
  1. RISPERIDONE [Suspect]
  2. ATOMOXETINE HCL [Suspect]

REACTIONS (1)
  - ERECTION INCREASED [None]
